FAERS Safety Report 23621910 (Version 3)
Quarter: 2025Q1

REPORT INFORMATION
  Report Type: Spontaneous
  Country: JP (occurrence: JP)
  Receive Date: 20240312
  Receipt Date: 20250318
  Transmission Date: 20250409
  Serious: Yes (Other)
  Sender: AMERICAN REGENT
  Company Number: JP-AMERICAN REGENT INC-2024000849

PATIENT
  Age: 71 Year
  Sex: Male

DRUGS (3)
  1. FERINJECT [Suspect]
     Active Substance: FERRIC CARBOXYMALTOSE
     Indication: Iron deficiency anaemia
     Route: 042
     Dates: start: 202305, end: 202305
  2. FERINJECT [Suspect]
     Active Substance: FERRIC CARBOXYMALTOSE
     Route: 042
     Dates: start: 2023, end: 2023
  3. FERINJECT [Suspect]
     Active Substance: FERRIC CARBOXYMALTOSE
     Route: 042
     Dates: start: 202308, end: 202308

REACTIONS (6)
  - Osteomalacia [Unknown]
  - Fracture [Recovered/Resolved]
  - Neoplasm [Unknown]
  - Fibroblast growth factor 23 increased [Recovered/Resolved]
  - Blood phosphorus decreased [Recovered/Resolved]
  - Bone pain [Recovered/Resolved]

NARRATIVE: CASE EVENT DATE: 20230501
